FAERS Safety Report 13410113 (Version 1)
Quarter: 2017Q2

REPORT INFORMATION
  Report Type: Report from Study
  Country: ES (occurrence: ES)
  Receive Date: 20170406
  Receipt Date: 20170406
  Transmission Date: 20170830
  Serious: Yes (Life-Threatening, Hospitalization, Other)
  Sender: FDA-Public Use
  Company Number: ES-AUROBINDO-AUR-APL-2017-32147

PATIENT
  Age: 64 Year
  Sex: Male

DRUGS (3)
  1. PEGINTERFERON ALFA-2A [Interacting]
     Active Substance: PEGINTERFERON ALFA-2A
     Indication: HEPATITIS C
     Dosage: 180 MG, UNK
     Route: 065
  2. RIBAVIRIN. [Suspect]
     Active Substance: RIBAVIRIN
     Indication: HEPATITIS C
     Dosage: 1200 MG, UNK
     Route: 065
  3. SIMEPREVIR [Interacting]
     Active Substance: SIMEPREVIR
     Indication: HEPATITIS C
     Dosage: 150 MG, UNK
     Route: 065

REACTIONS (9)
  - Pyrexia [Unknown]
  - Aplastic anaemia [Unknown]
  - Drug interaction [Unknown]
  - Anal fissure [Unknown]
  - Escherichia infection [Unknown]
  - Pancytopenia [Unknown]
  - Neutropenia [Unknown]
  - Septic shock [Unknown]
  - Haematotoxicity [Unknown]
